FAERS Safety Report 7514048-1 (Version None)
Quarter: 2011Q2

REPORT INFORMATION
  Report Type: 
  Country: None (occurrence: None)
  Receive Date: 20110531
  Receipt Date: 20100216
  Transmission Date: 20111010
  Serious: No
  Sender: FDA-Public Use
  Company Number: US-BAYER-201014253NA

PATIENT
  Age: 59 Year
  Sex: Female

DRUGS (5)
  1. PLAQUENIL [Concomitant]
  2. FELDENE [Concomitant]
  3. WELLBUTRIN [Concomitant]
  4. PROCARDIA XL [Concomitant]
  5. AVELOX [Suspect]
     Indication: SINUSITIS
     Dosage: 400 MG, QD
     Route: 048

REACTIONS (2)
  - JOINT SWELLING [None]
  - PAIN IN EXTREMITY [None]
